FAERS Safety Report 12988639 (Version 1)
Quarter: 2016Q4

REPORT INFORMATION
  Report Type: Report from Study
  Country: GB (occurrence: GB)
  Receive Date: 20161130
  Receipt Date: 20161130
  Transmission Date: 20170207
  Serious: Yes (Other)
  Sender: FDA-Public Use
  Company Number: GB-BAUSCH-BL-2016-029997

PATIENT
  Age: 59 Year

DRUGS (5)
  1. RITONAVIR. [Concomitant]
     Active Substance: RITONAVIR
     Indication: HEPATITIS C VIRUS TEST POSITIVE
  2. DASABUVIR [Concomitant]
     Active Substance: DASABUVIR
     Indication: HEPATITIS C VIRUS TEST POSITIVE
  3. OMBITASVIR [Concomitant]
     Active Substance: OMBITASVIR
     Indication: HEPATITIS C VIRUS TEST POSITIVE
  4. PARITAPREVIR [Concomitant]
     Active Substance: PARITAPREVIR
     Indication: HEPATITIS C VIRUS TEST POSITIVE
  5. RIBAVIRIN. [Suspect]
     Active Substance: RIBAVIRIN
     Indication: HEPATITIS C VIRUS TEST POSITIVE
     Route: 065

REACTIONS (4)
  - Ascites [Recovered/Resolved]
  - Haemorrhage [Recovered/Resolved]
  - Hepatic encephalopathy [Recovered/Resolved]
  - Peritonitis bacterial [Recovered/Resolved]
